FAERS Safety Report 6682781-X (Version None)
Quarter: 2010Q2

REPORT INFORMATION
  Report Type: 
  Country: None (occurrence: None)
  Receive Date: 20100415
  Receipt Date: 20100409
  Transmission Date: 20101027
  Serious: Yes (Hospitalization)
  Sender: FDA-Public Use
  Company Number: US-SANOFI-AVENTIS-2010SA016710

PATIENT
  Age: 53 Year
  Sex: Female
  Weight: 95.45 kg

DRUGS (3)
  1. PLAVIX [Suspect]
     Indication: TRANSIENT ISCHAEMIC ATTACK
     Route: 065
  2. ZOCOR [Concomitant]
  3. AMBIEN [Concomitant]
     Indication: SLEEP DISORDER
     Dates: start: 20080101

REACTIONS (8)
  - ABASIA [None]
  - ANEURYSM [None]
  - APHASIA [None]
  - CHEST PAIN [None]
  - DRUG HYPERSENSITIVITY [None]
  - HEMIPARESIS [None]
  - OFF LABEL USE [None]
  - TRANSIENT ISCHAEMIC ATTACK [None]
